FAERS Safety Report 6171260-4 (Version None)
Quarter: 2009Q2

REPORT INFORMATION
  Report Type: 
  Country: None (occurrence: None)
  Receive Date: 20090428
  Receipt Date: 20090428
  Transmission Date: 20091009
  Serious: Yes (Hospitalization)
  Sender: FDA-Public Use
  Company Number: None

PATIENT
  Age: 56 Year
  Sex: Female
  Weight: 101.9 kg

DRUGS (4)
  1. OMNIPAQUE 350 [Suspect]
     Indication: COMPUTERISED TOMOGRAM
     Dosage: 150 ML AND 75 ML TWO EPISODED IV 2 DOSES
     Route: 042
     Dates: start: 20090417, end: 20090418
  2. OMNIPAQUE 350 [Suspect]
     Indication: DIVERTICULITIS
     Dosage: 150 ML AND 75 ML TWO EPISODED IV 2 DOSES
     Route: 042
     Dates: start: 20090417, end: 20090418
  3. OMNIPAQUE 350 [Suspect]
     Indication: INFECTION
     Dosage: 150 ML AND 75 ML TWO EPISODED IV 2 DOSES
     Route: 042
     Dates: start: 20090417, end: 20090418
  4. VANCOMYCIN HCL [Suspect]
     Dosage: 1500 MG EVERY 12 HOURS IV 5 DOSES
     Route: 042
     Dates: start: 20090420, end: 20090423

REACTIONS (6)
  - ABDOMINAL DISTENSION [None]
  - DIVERTICULITIS [None]
  - HAEMOGLOBIN DECREASED [None]
  - PERITONITIS [None]
  - RENAL FAILURE [None]
  - SEPSIS [None]
